FAERS Safety Report 5319785-5 (Version None)
Quarter: 2007Q1

REPORT INFORMATION
  Report Type: 
  Country: None (occurrence: None)
  Receive Date: 20070201
  Receipt Date: 20061031
  Transmission Date: 20070707
  Serious: Yes (Other)
  Sender: FDA-Public Use
  Company Number: 2006134243

PATIENT
  Age: 50 Year
  Sex: Female
  Weight: 53.5244 kg

DRUGS (1)
  1. AROMASIN [Suspect]
     Indication: BREAST CANCER
     Dosage: 25 MG (24 MG, DAILY)
     Dates: start: 20060101

REACTIONS (1)
  - ARTHRALGIA [None]
